FAERS Safety Report 16010360 (Version 4)
Quarter: 2020Q2

REPORT INFORMATION
  Report Type: Spontaneous
  Country: GB (occurrence: GB)
  Receive Date: 20190227
  Receipt Date: 20200618
  Transmission Date: 20200713
  Serious: Yes (Life-Threatening, Hospitalization, Other)
  Sender: FDA-Public Use
  Company Number: GB-JNJFOC-2007302710

PATIENT
  Age: 12 Year
  Sex: Male

DRUGS (5)
  1. MORPHINE [Suspect]
     Active Substance: MORPHINE
     Indication: PAIN
     Dosage: DAILY DOSE TEXT: UNKNOWNDOSE: PATIENT-CONTROLLED ANALGESIA
     Route: 037
  2. PARACETAMOL [Suspect]
     Active Substance: ACETAMINOPHEN
     Indication: PAIN
     Dosage: 50 MG QD
     Route: 065
  3. DICLOFENAC [Suspect]
     Active Substance: DICLOFENAC
     Indication: PAIN
     Dosage: DAILY DOSE TEXT: UNKNOWN
     Route: 065
  4. PARACETAMOL [Suspect]
     Active Substance: ACETAMINOPHEN
     Indication: PRODUCT USED FOR UNKNOWN INDICATION
     Dosage: 65 MG QD
     Route: 042
  5. PARACETAMOL [Suspect]
     Active Substance: ACETAMINOPHEN
     Dosage: 53 MG/KG, QD
     Route: 042

REACTIONS (10)
  - Abdominal pain [Recovering/Resolving]
  - Pallor [Recovering/Resolving]
  - Colitis ulcerative [Recovering/Resolving]
  - Hypovolaemia [Not Recovered/Not Resolved]
  - Condition aggravated [Unknown]
  - Drug ineffective [Recovering/Resolving]
  - Megacolon [Recovering/Resolving]
  - Pain [Recovering/Resolving]
  - Lethargy [Unknown]
  - Rectal haemorrhage [Recovering/Resolving]

NARRATIVE: CASE EVENT DATE: 2007
